FAERS Safety Report 6619948-2 (Version None)
Quarter: 2010Q1

REPORT INFORMATION
  Report Type: 
  Country: None (occurrence: None)
  Receive Date: 20100304
  Receipt Date: 20100216
  Transmission Date: 20100710
  Serious: Yes (Hospitalization)
  Sender: FDA-Public Use
  Company Number: KV201000052

PATIENT
  Age: 77 Year
  Sex: Female

DRUGS (12)
  1. ISOSORBIDE MONONITRATE [Suspect]
     Indication: DRUG USE FOR UNKNOWN INDICATION
     Dosage: 30 MG, QD, ORAL
     Route: 048
  2. PLAVIX [Concomitant]
  3. AMARYL [Concomitant]
  4. LOPRESSOR [Concomitant]
  5. VYTORIN [Concomitant]
  6. GLUCOPHAGE /00082701/ (METFORMIN) [Concomitant]
  7. NEXIUM [Concomitant]
  8. JANUVIA [Concomitant]
  9. HYDROCHLOROTHIAZIDE [Concomitant]
  10. PRAVACHOL [Concomitant]
  11. GLIMEPIRIDE [Concomitant]
  12. METFORMIN HCL [Concomitant]

REACTIONS (18)
  - ABDOMINAL PAIN [None]
  - ANAEMIA [None]
  - ASTHENIA [None]
  - CHEST DISCOMFORT [None]
  - COLD SWEAT [None]
  - DEHYDRATION [None]
  - DIARRHOEA [None]
  - DYSPNOEA EXERTIONAL [None]
  - DYSURIA [None]
  - HYPERHIDROSIS [None]
  - MUSCULOSKELETAL PAIN [None]
  - NAUSEA [None]
  - OEDEMA [None]
  - PALPITATIONS [None]
  - POLLAKIURIA [None]
  - PYREXIA [None]
  - RENAL FAILURE [None]
  - VOMITING [None]
